FAERS Safety Report 5954198-4 (Version None)
Quarter: 2008Q4

REPORT INFORMATION
  Report Type: 
  Country: None (occurrence: None)
  Receive Date: 20081113
  Receipt Date: 20081113
  Transmission Date: 20090506
  Serious: No
  Sender: FDA-Public Use
  Company Number: None

PATIENT
  Sex: Female
  Weight: 58.514 kg

DRUGS (1)
  1. ALENDRONATE SODIUM [Suspect]
     Indication: OSTEOPOROSIS
     Dosage: 70 MG QWKLY PO
     Route: 048
     Dates: start: 20080301, end: 20081001

REACTIONS (4)
  - ABDOMINAL PAIN UPPER [None]
  - DRUG INTOLERANCE [None]
  - NAUSEA [None]
  - PRODUCT QUALITY ISSUE [None]
